FAERS Safety Report 6895598-8 (Version None)
Quarter: 2010Q3

REPORT INFORMATION
  Report Type: 
  Country: None (occurrence: None)
  Receive Date: 20100802
  Receipt Date: 20100728
  Transmission Date: 20110219
  Serious: Yes (Death, Hospitalization)
  Sender: FDA-Public Use
  Company Number: PHHY2010BR49390

PATIENT
  Age: 51 Year

DRUGS (2)
  1. CYCLOSPORINE [Suspect]
     Indication: HEART TRANSPLANT
  2. AZATHIOPRINE [Concomitant]
     Indication: HEART TRANSPLANT

REACTIONS (2)
  - CARDIAC FAILURE [None]
  - HEART TRANSPLANT REJECTION [None]
